FAERS Safety Report 4917810-4 (Version None)
Quarter: 2006Q1

REPORT INFORMATION
  Report Type: 
  Country: None (occurrence: None)
  Receive Date: 20060221
  Receipt Date: 20060213
  Transmission Date: 20060701
  Serious: Yes (Hospitalization)
  Sender: FDA-Public Use
  Company Number: GB-AVENTIS-200611425GDDC

PATIENT
  Age: 13 Year
  Sex: Female

DRUGS (2)
  1. LANTUS [Suspect]
     Route: 030
  2. NOVORAPID [Concomitant]

REACTIONS (3)
  - DIABETES MELLITUS INADEQUATE CONTROL [None]
  - DIABETIC KETOACIDOSIS [None]
  - INCORRECT ROUTE OF DRUG ADMINISTRATION [None]
